FAERS Safety Report 20331057 (Version 3)
Quarter: 2022Q3

REPORT INFORMATION
  Report Type: Spontaneous
  Country: IT (occurrence: IT)
  Receive Date: 20220113
  Receipt Date: 20220727
  Transmission Date: 20221027
  Serious: Yes (Other)
  Sender: FDA-Public Use
  Company Number: IT-FRESENIUS KABI-FK202114333

PATIENT
  Age: 85 Year
  Sex: Male

DRUGS (1)
  1. ERTAPENEM SODIUM [Suspect]
     Active Substance: ERTAPENEM SODIUM
     Indication: Proteus infection
     Dosage: UNK, ADJUSTING THE DOSE TO THE PATIENT^S KIDNEY FUNCTION (III A KIDNEY DISEASE OUTCOMES QUALITY INIT

REACTIONS (1)
  - Neurotoxicity [Recovered/Resolved]
